FAERS Safety Report 7044090-9 (Version None)
Quarter: 2010Q4

REPORT INFORMATION
  Report Type: 
  Country: None (occurrence: None)
  Receive Date: 20101013
  Receipt Date: 20101006
  Transmission Date: 20110411
  Serious: Yes (Other)
  Sender: FDA-Public Use
  Company Number: BR-PFIZER INC-2010116843

PATIENT
  Age: 41 Year
  Sex: Female
  Weight: 83 kg

DRUGS (6)
  1. FRONTAL XR [Suspect]
     Indication: NERVOUSNESS
     Dosage: 1 MG, 1X/DAY, AT NIGHT
     Route: 048
     Dates: start: 20100601, end: 20100814
  2. FRONTAL XR [Suspect]
     Indication: ANXIETY
     Dosage: 1 MG, 2X/DAY
     Route: 048
     Dates: start: 20100814
  3. FRONTAL XR [Suspect]
     Dosage: 0.5 MG, 2X/DAY
     Route: 048
  4. FRONTAL [Suspect]
     Dosage: UNK
     Route: 048
  5. DRAMIN B-6 [Suspect]
     Indication: LABYRINTHITIS
     Dosage: UNK
  6. HYDROCHLOROTHIAZIDE [Concomitant]
     Indication: HYPERTENSION
     Dosage: UNK
     Dates: start: 20100301

REACTIONS (16)
  - ASTHENIA [None]
  - BLOOD PRESSURE INCREASED [None]
  - DIZZINESS [None]
  - DRUG ADMINISTRATION ERROR [None]
  - DRUG INEFFECTIVE [None]
  - EATING DISORDER [None]
  - FEAR [None]
  - FEELING ABNORMAL [None]
  - HYPERHIDROSIS [None]
  - HYPERSOMNIA [None]
  - LABYRINTHITIS [None]
  - MUSCULAR WEAKNESS [None]
  - NAUSEA [None]
  - PAIN IN EXTREMITY [None]
  - SEDATION [None]
  - WEIGHT DECREASED [None]
